FAERS Safety Report 6201577-6 (Version None)
Quarter: 2009Q2

REPORT INFORMATION
  Report Type: 
  Country: None (occurrence: None)
  Receive Date: 20090526
  Receipt Date: 20090518
  Transmission Date: 20091009
  Serious: Yes (Disabling, Other)
  Sender: FDA-Public Use
  Company Number: US-ROCHE-622865

PATIENT
  Sex: Female
  Weight: 71.2 kg

DRUGS (12)
  1. BONIVA [Suspect]
     Indication: DRUG USE FOR UNKNOWN INDICATION
     Route: 048
     Dates: start: 20090116, end: 20090210
  2. PLAVIX [Concomitant]
  3. FLUTICASONE [Concomitant]
  4. CALCIUM [Concomitant]
  5. OSTEO BIFLEX [Concomitant]
  6. MULTIVITAMIN NOS [Concomitant]
  7. ASPIRIN [Concomitant]
  8. TOPROL-XL [Concomitant]
     Route: 048
  9. ENALAPRIL MALEATE [Concomitant]
     Indication: HYPERTENSION
     Route: 048
  10. LEVOTHYROXINE SODIUM [Concomitant]
     Indication: HYPOTHYROIDISM
     Route: 048
  11. CRESTOR [Concomitant]
     Route: 048
  12. NEXIUM [Concomitant]
     Route: 048

REACTIONS (3)
  - ANXIETY [None]
  - EXTREMITY CONTRACTURE [None]
  - MUSCULOSKELETAL PAIN [None]
